FAERS Safety Report 9104043 (Version 1)
Quarter: 2013Q1

REPORT INFORMATION
  Report Type: Spontaneous
  Country: US (occurrence: US)
  Receive Date: 20130219
  Receipt Date: 20130219
  Transmission Date: 20140127
  Serious: No
  Sender: FDA-Public Use
  Company Number: US-TEVA-385243USA

PATIENT
  Age: 68 Year
  Sex: Female
  Weight: 61.29 kg

DRUGS (2)
  1. QNASL [Suspect]
     Indication: NASAL POLYPS
     Dosage: QD
     Route: 045
     Dates: start: 20130202
  2. PREDNISONE [Concomitant]
     Indication: NASAL POLYPS
     Dosage: QD
     Route: 048

REACTIONS (1)
  - Nasal discomfort [Not Recovered/Not Resolved]
